FAERS Safety Report 6252720-4 (Version None)
Quarter: 2009Q2

REPORT INFORMATION
  Report Type: 
  Country: None (occurrence: None)
  Receive Date: 20090629
  Receipt Date: 20090629
  Transmission Date: 20091009
  Serious: Yes (Hospitalization)
  Sender: FDA-Public Use
  Company Number: None

PATIENT
  Age: 63 Year
  Sex: Male

DRUGS (2)
  1. CLONAZEPAM [Suspect]
     Indication: BIPOLAR I DISORDER
     Dosage: 1 MG OTHER PO
     Route: 048
     Dates: start: 20090424, end: 20090427
  2. DIPHENHYDRAMINE HCL [Suspect]
     Indication: EXTRAPYRAMIDAL DISORDER
     Dosage: 25 MG QID PO
     Route: 048
     Dates: start: 20090422, end: 20090430

REACTIONS (4)
  - CONFUSIONAL STATE [None]
  - DELIRIUM [None]
  - DISORIENTATION [None]
  - SOMNOLENCE [None]
